FAERS Safety Report 8364382-0 (Version None)
Quarter: 2012Q2

REPORT INFORMATION
  Report Type: 
  Country: None (occurrence: None)
  Receive Date: 20120516
  Receipt Date: 20120129
  Transmission Date: 20120825
  Serious: Yes (Death, Hospitalization)
  Sender: FDA-Public Use
  Company Number: PHHY2011AE116468

PATIENT
  Sex: Female

DRUGS (2)
  1. DEFERASIROX [Suspect]
     Indication: CHELATION THERAPY
     Dosage: 1000 MG, (35 MG/KG)
     Route: 048
     Dates: start: 20070701
  2. FOLIC ACID [Concomitant]

REACTIONS (8)
  - ABNORMAL BEHAVIOUR [None]
  - CONFUSIONAL STATE [None]
  - VISUAL IMPAIRMENT [None]
  - WEIGHT DECREASED [None]
  - MENTAL DISORDER [None]
  - AMMONIA INCREASED [None]
  - ELEVATED MOOD [None]
  - VOMITING [None]
